FAERS Safety Report 9661383 (Version 2)
Quarter: 2013Q4

REPORT INFORMATION
  Report Type: Spontaneous
  Country: US (occurrence: US)
  Receive Date: 20131031
  Receipt Date: 20131214
  Transmission Date: 20140711
  Serious: Yes (Other)
  Sender: FDA-Public Use
  Company Number: US-UCBSA-101798

PATIENT
  Age: 57 Year
  Sex: Female

DRUGS (11)
  1. CIMZIA [Suspect]
     Indication: RHEUMATOID ARTHRITIS
     Dates: start: 201307
  2. FLOIC ACID [Concomitant]
  3. LISINOPRIL [Concomitant]
  4. LEXPRO [Concomitant]
  5. PREMINE [Concomitant]
  6. CINGULAR [Concomitant]
  7. ADVAIR [Concomitant]
  8. LINZESS [Concomitant]
  9. LIBRAX [Concomitant]
  10. LEVAQUIN [Concomitant]
     Dosage: ONE TABLET EVERY DAY
  11. PYRIDIUM [Concomitant]
     Dosage: ONE TABLET EVERY DAY

REACTIONS (5)
  - Cystitis [Recovered/Resolved]
  - Kidney infection [Recovered/Resolved]
  - Candida infection [Not Recovered/Not Resolved]
  - Urinary tract infection [Not Recovered/Not Resolved]
  - Fungal infection [Recovered/Resolved]
